FAERS Safety Report 10362502 (Version 1)
Quarter: 2014Q3

REPORT INFORMATION
  Report Type: Spontaneous
  Country: CN (occurrence: CN)
  Receive Date: 20140805
  Receipt Date: 20140805
  Transmission Date: 20150326
  Serious: Yes (Hospitalization, Other)
  Sender: FDA-Public Use
  Company Number: PHHY2014CN094142

PATIENT
  Age: 81 Year
  Sex: Male

DRUGS (2)
  1. CARBAMAZEPINE. [Suspect]
     Active Substance: CARBAMAZEPINE
     Indication: TRIGEMINAL NEURALGIA
     Dosage: 0.2 G, QD
     Route: 048
  2. ROXITHROMYCIN [Interacting]
     Active Substance: ROXITHROMYCIN
     Indication: OROPHARYNGEAL PAIN

REACTIONS (21)
  - Erythema [Recovered/Resolved]
  - Oedema peripheral [Recovered/Resolved]
  - Face oedema [Recovered/Resolved]
  - Erythema multiforme [Recovered/Resolved]
  - Deafness [Unknown]
  - Electrolyte imbalance [Unknown]
  - Hypoalbuminaemia [Unknown]
  - Mouth ulceration [Recovered/Resolved]
  - Scrotal oedema [Recovered/Resolved]
  - Purpura [Recovered/Resolved]
  - Drug interaction [Unknown]
  - Blister [Recovered/Resolved]
  - Toxicity to various agents [Recovering/Resolving]
  - Dizziness [Unknown]
  - General physical health deterioration [Recovering/Resolving]
  - Oedema [Recovered/Resolved]
  - Fatigue [Unknown]
  - Rash [Recovered/Resolved]
  - Pruritus [Recovered/Resolved]
  - Dermatitis allergic [Recovered/Resolved]
  - Malaise [Unknown]
